FAERS Safety Report 4278013-2 (Version None)
Quarter: 2004Q1

REPORT INFORMATION
  Report Type: 
  Country: None (occurrence: None)
  Receive Date: 20040121
  Receipt Date: 20040105
  Transmission Date: 20041129
  Serious: Yes (Hospitalization)
  Sender: FDA-Public Use
  Company Number: A02200400026

PATIENT
  Age: 42 Year
  Sex: Female

DRUGS (1)
  1. PLAQUENIL [Suspect]
     Dosage: 400 MG
     Route: 048
     Dates: start: 20031030, end: 20031129

REACTIONS (3)
  - ALANINE AMINOTRANSFERASE INCREASED [None]
  - DRUG TOXICITY [None]
  - HEPATITIS [None]
